FAERS Safety Report 7455016-8 (Version None)
Quarter: 2011Q2

REPORT INFORMATION
  Report Type: 
  Country: None (occurrence: None)
  Receive Date: 20110503
  Receipt Date: 20110501
  Transmission Date: 20111010
  Serious: Yes (Hospitalization, Other)
  Sender: FDA-Public Use
  Company Number: IL-PFIZER INC-2011060935

PATIENT
  Age: 30 Year
  Sex: Male

DRUGS (4)
  1. METHOTRIMEPRAZINE [Concomitant]
     Indication: INSOMNIA
  2. GEODON [Suspect]
     Indication: SCHIZOPHRENIA
     Dosage: 80 MG, 3X/DAY (80MG IN THE MORNING AND 160MG IN THE EVENING)
     Route: 048
     Dates: start: 20101201
  3. ASSIVAL [Concomitant]
  4. ARTANE [Concomitant]

REACTIONS (6)
  - PARAESTHESIA [None]
  - HEADACHE [None]
  - INSOMNIA [None]
  - DYSKINESIA [None]
  - MUSCLE TWITCHING [None]
  - ANKLE FRACTURE [None]
